FAERS Safety Report 17660874 (Version 1)
Quarter: 2020Q2

REPORT INFORMATION
  Report Type: Spontaneous
  Country: US (occurrence: US)
  Receive Date: 20200413
  Receipt Date: 20200413
  Transmission Date: 20200713
  Serious: No
  Sender: FDA-Public Use
  Company Number: NVSC2020US097486

PATIENT
  Age: 75 Year
  Sex: Female
  Weight: 90.72 kg

DRUGS (2)
  1. CARBAMAZEPINE. [Suspect]
     Active Substance: CARBAMAZEPINE
     Indication: TRIGEMINAL NEURALGIA
     Dosage: 5 DF (02 TABLET IN MORNING AND 03 TABLET IN EVENING) QD
     Route: 048
  2. LYRICA [Suspect]
     Active Substance: PREGABALIN
     Indication: TRIGEMINAL NEURALGIA
     Dosage: 50 MG, BID
     Route: 048
     Dates: start: 201912

REACTIONS (5)
  - Weight fluctuation [Unknown]
  - Trigeminal neuralgia [Not Recovered/Not Resolved]
  - Bronchitis [Recovered/Resolved]
  - Aphasia [Unknown]
  - Gait inability [Unknown]

NARRATIVE: CASE EVENT DATE: 202001
